FAERS Safety Report 9359830 (Version 2)
Quarter: 2013Q3

REPORT INFORMATION
  Report Type: Spontaneous
  Country: US (occurrence: US)
  Receive Date: 20130621
  Receipt Date: 20130708
  Transmission Date: 20140515
  Serious: Yes (Other)
  Sender: FDA-Public Use
  Company Number: US-ROCHE-1236812

PATIENT
  Age: 57 Year
  Sex: Female
  Weight: 107.14 kg

DRUGS (12)
  1. XOLAIR [Suspect]
     Indication: ASTHMA
     Route: 058
     Dates: start: 20121226, end: 20130515
  2. QVAR [Concomitant]
     Indication: ASTHMA
     Dosage: PUFFS
     Route: 050
     Dates: start: 20100814
  3. CETIRIZINE [Concomitant]
     Indication: ASTHMA
     Dosage: STARTED BEFORE 14/AUG/2010
     Route: 048
     Dates: start: 20110314
  4. VERAMYST [Concomitant]
     Indication: HYPERSENSITIVITY
     Dosage: STARTED BEFORE 14/AUG/2010: SPRAY WITH NOSTRILS
     Route: 065
  5. PROVENTIL HFA [Concomitant]
     Dosage: STARTED BEFORE 14/AUG/2010 ; 2P; AS REQUIRED
     Route: 065
  6. BUDESONIDE [Concomitant]
     Route: 065
  7. PREDNISONE [Concomitant]
     Route: 065
  8. CRESTOR [Concomitant]
     Route: 065
  9. ASA [Concomitant]
     Route: 065
  10. RESTASIS [Concomitant]
     Route: 065
  11. LOSARTAN [Concomitant]
     Route: 065
  12. DILTIAZEM [Concomitant]
     Route: 065

REACTIONS (4)
  - Blood pressure increased [Recovering/Resolving]
  - Pain in extremity [Recovering/Resolving]
  - Retinal vascular thrombosis [Recovering/Resolving]
  - Joint swelling [Recovering/Resolving]
